FAERS Safety Report 7176163-4 (Version None)
Quarter: 2010Q4

REPORT INFORMATION
  Report Type: 
  Country: None (occurrence: None)
  Receive Date: 20101220
  Receipt Date: 20101209
  Transmission Date: 20110411
  Serious: No
  Sender: FDA-Public Use
  Company Number: US-BIOGENIDEC-2010BI043484

PATIENT
  Age: 34 Year
  Sex: Female

DRUGS (4)
  1. TYSABRI [Suspect]
     Indication: MULTIPLE SCLEROSIS
     Route: 042
     Dates: start: 20101118
  2. TYSABRI [Suspect]
     Route: 042
     Dates: start: 20090508, end: 20100112
  3. TYSABRI [Suspect]
     Route: 042
     Dates: start: 20070719, end: 20081212
  4. AVONEX [Concomitant]
     Indication: MULTIPLE SCLEROSIS
     Route: 030
     Dates: start: 20020502

REACTIONS (1)
  - INFLUENZA [None]
